APPROVED DRUG PRODUCT: ESOMEPRAZOLE MAGNESIUM
Active Ingredient: ESOMEPRAZOLE MAGNESIUM
Strength: EQ 40MG BASE
Dosage Form/Route: CAPSULE, DELAYED REL PELLETS;ORAL
Application: A205563 | Product #002 | TE Code: AB
Applicant: LANNETT CO INC
Approved: Sep 1, 2017 | RLD: No | RS: No | Type: RX